FAERS Safety Report 5157926-3 (Version None)
Quarter: 2006Q4

REPORT INFORMATION
  Report Type: 
  Country: None (occurrence: None)
  Receive Date: 20061116
  Receipt Date: 20061103
  Transmission Date: 20070319
  Serious: Yes (Hospitalization, Other)
  Sender: FDA-Public Use
  Company Number: 2006136733

PATIENT
  Age: 16 Year
  Sex: Female
  Weight: 79 kg

DRUGS (13)
  1. CELEBREX [Suspect]
     Indication: GLIOBLASTOMA MULTIFORME
     Dosage: 800 MG (400 MG, 2 IN 1 D)
     Dates: start: 20060821
  2. FLUCONAZOLE [Suspect]
     Indication: VAGINAL CANDIDIASIS
     Dosage: 150 MG (150 MG, 1 IN 1 D)
     Dates: start: 20061001
  3. THALIDOMIDE              (THALIDOMIDE) [Concomitant]
  4. FENOFIBRATE [Concomitant]
  5. ZOFRAN [Concomitant]
  6. MIRALAX [Concomitant]
  7. DIAZEPAM [Concomitant]
  8. CYCLOPHOSPHAMIDE [Concomitant]
  9. DEXAMETHASONE TAB [Concomitant]
  10. KEPPRA [Concomitant]
  11. ASPIRIN [Concomitant]
  12. LEVOTHYROXINE SODIUM [Concomitant]
  13. ZANTAC [Concomitant]

REACTIONS (5)
  - CEREBROVASCULAR ACCIDENT [None]
  - COMPLEX PARTIAL SEIZURES [None]
  - GENITAL INFECTION FUNGAL [None]
  - PULMONARY EMBOLISM [None]
  - THROMBOSIS [None]
